FAERS Safety Report 14840943 (Version 8)
Quarter: 2019Q3

REPORT INFORMATION
  Report Type: Spontaneous
  Country: US (occurrence: US)
  Receive Date: 20180503
  Receipt Date: 20190927
  Transmission Date: 20191004
  Serious: No
  Sender: FDA-Public Use
  Company Number: US-PFIZER INC-2018181260

PATIENT
  Age: 69 Year
  Sex: Female
  Weight: 95 kg

DRUGS (2)
  1. LYRICA [Suspect]
     Active Substance: PREGABALIN
     Indication: NEUROPATHY PERIPHERAL
     Dosage: UNK
  2. LYRICA [Suspect]
     Active Substance: PREGABALIN
     Dosage: 200 MG, 2X/DAY
     Route: 048
     Dates: start: 20180430, end: 20180709

REACTIONS (11)
  - Off label use [Unknown]
  - Product use in unapproved indication [Unknown]
  - Nausea [Unknown]
  - Somnolence [Unknown]
  - Vomiting [Unknown]
  - Malaise [Unknown]
  - Gait disturbance [Unknown]
  - Headache [Unknown]
  - Asthma [Not Recovered/Not Resolved]
  - Loss of personal independence in daily activities [Unknown]
  - Feeding disorder [Unknown]

NARRATIVE: CASE EVENT DATE: 201805
